FAERS Safety Report 4651285-8 (Version None)
Quarter: 2005Q2

REPORT INFORMATION
  Report Type: 
  Country: None (occurrence: None)
  Receive Date: 20050503
  Receipt Date: 20050426
  Transmission Date: 20051028
  Serious: Yes (Hospitalization)
  Sender: FDA-Public Use
  Company Number: US-BRISTOL-MYERS SQUIBB COMPANY-12946646

PATIENT
  Age: 73 Year
  Sex: Male

DRUGS (2)
  1. CARBOPLATIN [Suspect]
     Indication: NON-SMALL CELL LUNG CANCER STAGE IV
     Dosage: 50 MG/M2
     Route: 042
     Dates: start: 20050216, end: 20050309
  2. GEMZAR [Suspect]
     Indication: NON-SMALL CELL LUNG CANCER
     Dosage: GIVEN ON CYCLE DAYS 1 AND 8; 200 MG/M2
     Route: 042
     Dates: start: 20050216

REACTIONS (1)
  - ANAEMIA HAEMOLYTIC AUTOIMMUNE [None]
